FAERS Safety Report 9128984 (Version 1)
Quarter: 2013Q1

REPORT INFORMATION
  Report Type: Spontaneous
  Country: GB (occurrence: GB)
  Receive Date: 20130125
  Receipt Date: 20130125
  Transmission Date: 20140127
  Serious: Yes (Other)
  Sender: FDA-Public Use
  Company Number: GB-GLAXOSMITHKLINE-B0849034A

PATIENT
  Sex: 0

DRUGS (3)
  1. NIQUITIN CQ 4MG LOZENGE [Suspect]
     Indication: DRUG WITHDRAWAL MAINTENANCE THERAPY
     Route: 002
  2. NIQUITIN [Suspect]
     Indication: DRUG WITHDRAWAL MAINTENANCE THERAPY
     Route: 002
  3. NIQUITIN [Suspect]
     Indication: DRUG WITHDRAWAL MAINTENANCE THERAPY
     Route: 062

REACTIONS (17)
  - Type 2 diabetes mellitus [Unknown]
  - Drug administration error [Unknown]
  - Nicotine dependence [Unknown]
  - Withdrawal syndrome [Unknown]
  - Pain in extremity [Unknown]
  - Arthralgia [Unknown]
  - Abdominal discomfort [Unknown]
  - Disturbance in attention [Unknown]
  - Poor quality sleep [Unknown]
  - Asthenia [Unknown]
  - Irritability [Unknown]
  - Anger [Unknown]
  - Middle insomnia [Unknown]
  - Abnormal dreams [Unknown]
  - Gastrooesophageal reflux disease [Unknown]
  - Wrong technique in drug usage process [None]
  - Impaired driving ability [None]
